FAERS Safety Report 6327805-4 (Version None)
Quarter: 2009Q3

REPORT INFORMATION
  Report Type: 
  Country: None (occurrence: None)
  Receive Date: 20090824
  Receipt Date: 20090811
  Transmission Date: 20100115
  Serious: Yes (Death, Hospitalization)
  Sender: FDA-Public Use
  Company Number: 2009AL002226

PATIENT
  Age: 95 Year
  Sex: Female

DRUGS (19)
  1. DIGOXIN [Suspect]
     Dosage: 0.125MG, DAILY, PO
     Route: 048
     Dates: start: 20070801
  2. COREG [Concomitant]
  3. VITRON C [Concomitant]
  4. LISINOPRIL [Concomitant]
  5. COUMADIN [Concomitant]
  6. LUMIGAN [Concomitant]
  7. LIDODERM [Concomitant]
  8. BOOST [Concomitant]
  9. FUROSEMIDE [Concomitant]
  10. QUININE [Concomitant]
  11. PERCOCET [Concomitant]
  12. DOCUSATE SODIUM [Concomitant]
  13. OXYCODONE [Concomitant]
  14. FERROUS SULFATE TAB [Concomitant]
  15. TYLENOL (CAPLET) [Concomitant]
  16. LYRICA [Concomitant]
  17. METOLAZONE [Concomitant]
  18. FENTANYL [Concomitant]
  19. QUALAQUIN [Concomitant]

REACTIONS (18)
  - APATHY [None]
  - ARRHYTHMIA [None]
  - ASTHENIA [None]
  - ATRIAL FIBRILLATION [None]
  - CARDIOACTIVE DRUG LEVEL INCREASED [None]
  - DECREASED APPETITE [None]
  - DIARRHOEA [None]
  - ECONOMIC PROBLEM [None]
  - EMOTIONAL DISORDER [None]
  - HALLUCINATION [None]
  - INJURY [None]
  - INTERNATIONAL NORMALISED RATIO INCREASED [None]
  - MENTAL DISORDER [None]
  - OEDEMA [None]
  - PAIN [None]
  - RENAL FAILURE [None]
  - THERAPEUTIC AGENT TOXICITY [None]
  - UNEVALUABLE EVENT [None]
